FAERS Safety Report 17362611 (Version 3)
Quarter: 2020Q1

REPORT INFORMATION
  Report Type: Spontaneous
  Country: US (occurrence: US)
  Receive Date: 20200203
  Receipt Date: 20200228
  Transmission Date: 20200409
  Serious: Yes (Hospitalization)
  Sender: FDA-Public Use
  Company Number: US-ALKERMES INC.-ALK-2020-000443

PATIENT
  Age: 60 Year
  Sex: Female
  Weight: 82.54 kg

DRUGS (8)
  1. OXYGEN. [Concomitant]
     Active Substance: OXYGEN
     Dosage: UNK
  2. LASIX [Concomitant]
     Active Substance: FUROSEMIDE
     Indication: PRODUCT USED FOR UNKNOWN INDICATION
     Dosage: UNK
  3. VIVITROL [Suspect]
     Active Substance: NALTREXONE
     Dosage: 380 MG, QMO
     Route: 030
     Dates: start: 20191212, end: 20191212
  4. OTHER THERAPEUTIC PRODUCTS [Concomitant]
     Active Substance: UNSPECIFIED INGREDIENT
     Indication: PRODUCT USED FOR UNKNOWN INDICATION
     Dosage: UNK
  5. VIVITROL [Suspect]
     Active Substance: NALTREXONE
     Indication: ALCOHOLISM
     Dosage: 380 MG, QMO
     Route: 030
     Dates: start: 20200116, end: 20200116
  6. VIVITROL [Suspect]
     Active Substance: NALTREXONE
     Dosage: 380 MG, QMO
     Route: 030
     Dates: start: 20191106, end: 20191108
  7. PREDNISONE. [Concomitant]
     Active Substance: PREDNISONE
     Indication: PRODUCT USED FOR UNKNOWN INDICATION
     Dosage: UNK
     Route: 065
  8. OXYGEN. [Concomitant]
     Active Substance: OXYGEN
     Indication: PNEUMONIA
     Dosage: UNK
     Dates: start: 20191229

REACTIONS (7)
  - Micturition frequency decreased [Recovering/Resolving]
  - Swelling [Recovering/Resolving]
  - Dyspnoea [Recovering/Resolving]
  - Pneumonia [Recovering/Resolving]
  - Fluid retention [Recovering/Resolving]
  - Muscle spasms [Recovering/Resolving]
  - Pharyngeal swelling [Recovering/Resolving]

NARRATIVE: CASE EVENT DATE: 201912
